FAERS Safety Report 10700339 (Version 1)
Quarter: 2015Q1

REPORT INFORMATION
  Report Type: Spontaneous
  Country: DE (occurrence: DE)
  Receive Date: 20150109
  Receipt Date: 20150109
  Transmission Date: 20150721
  Serious: Yes (Other)
  Sender: FDA-Public Use
  Company Number: PHHY2015DE001380

PATIENT
  Age: 54 Year
  Sex: Female

DRUGS (1)
  1. ZOLEDRONATE [Suspect]
     Active Substance: ZOLEDRONIC ACID
     Indication: UTERINE CANCER
     Route: 042

REACTIONS (1)
  - Osteonecrosis of jaw [Unknown]
